FAERS Safety Report 14855600 (Version 1)
Quarter: 2018Q2

REPORT INFORMATION
  Report Type: Spontaneous
  Country: US (occurrence: US)
  Receive Date: 20180507
  Receipt Date: 20180507
  Transmission Date: 20180711
  Serious: No
  Sender: FDA-Public Use
  Company Number: US-ROCHE-1982453

PATIENT
  Sex: Male

DRUGS (3)
  1. ESBRIET [Suspect]
     Active Substance: PIRFENIDONE
     Dosage: NO
     Route: 048
     Dates: start: 20170616, end: 201708
  2. ESBRIET [Suspect]
     Active Substance: PIRFENIDONE
     Indication: IDIOPATHIC PULMONARY FIBROSIS
     Dosage: 9 PILLS A DAY ;ONGOING: NO
     Route: 048
     Dates: start: 201708, end: 201708
  3. ESBRIET [Suspect]
     Active Substance: PIRFENIDONE
     Dosage: 6 PILLS A DAY ;ONGOING: YES
     Route: 048
     Dates: start: 201708

REACTIONS (4)
  - Headache [Recovering/Resolving]
  - Arthralgia [Recovering/Resolving]
  - Insomnia [Recovering/Resolving]
  - Influenza [Recovering/Resolving]

NARRATIVE: CASE EVENT DATE: 201708
